FAERS Safety Report 4791318-1 (Version None)
Quarter: 2005Q4

REPORT INFORMATION
  Report Type: 
  Country: None (occurrence: None)
  Receive Date: 20051007
  Receipt Date: 20050927
  Transmission Date: 20060501
  Serious: Yes (Other)
  Sender: FDA-Public Use
  Company Number: NO-JNJFOC-20050203930

PATIENT
  Sex: Female

DRUGS (1)
  1. REMICADE [Suspect]
     Route: 042

REACTIONS (4)
  - COLD SWEAT [None]
  - INFUSION RELATED REACTION [None]
  - NAUSEA [None]
  - TACHYCARDIA [None]
